FAERS Safety Report 24639343 (Version 2)
Quarter: 2024Q4

REPORT INFORMATION
  Report Type: Spontaneous
  Country: CL (occurrence: CL)
  Receive Date: 20241119
  Receipt Date: 20241121
  Transmission Date: 20250114
  Serious: Yes (Hospitalization)
  Sender: BIOMARIN
  Company Number: CL-BIOMARINAP-CL-2024-161897

PATIENT

DRUGS (1)
  1. VIMIZIM [Suspect]
     Active Substance: ELOSULFASE ALFA
     Indication: Mucopolysaccharidosis IV
     Dosage: UNK
     Route: 042
     Dates: start: 20190101

REACTIONS (3)
  - Oxygen saturation decreased [Not Recovered/Not Resolved]
  - Fatigue [Not Recovered/Not Resolved]
  - Hypoacusis [Recovering/Resolving]

NARRATIVE: CASE EVENT DATE: 20241112
